FAERS Safety Report 4526174-X (Version None)
Quarter: 2004Q4

REPORT INFORMATION
  Report Type: 
  Country: None (occurrence: None)
  Receive Date: 20041213
  Receipt Date: 20041213
  Transmission Date: 20050328
  Serious: Yes (Life-Threatening)
  Sender: FDA-Public Use
  Company Number: None

PATIENT
  Age: 78 Year
  Sex: Male
  Weight: 79 kg

DRUGS (2)
  1. IVIG   6 GRAM VIALS    ZLB [Suspect]
     Indication: THROMBOCYTOPENIA
     Dosage: 32 GRAMS   ONCE    INTRAVENOU
     Route: 042
     Dates: start: 20041126, end: 20041126
  2. IV FLUIDS [Suspect]
     Dosage: 75 ML/HR   INTRAVENOU
     Route: 042
     Dates: start: 20041126, end: 20041126

REACTIONS (13)
  - CREPITATIONS [None]
  - DYSPNOEA [None]
  - ELECTROCARDIOGRAM ST SEGMENT ABNORMAL [None]
  - HEART RATE INCREASED [None]
  - HYPERTENSIVE CRISIS [None]
  - HYPOTENSION [None]
  - INFUSION RELATED REACTION [None]
  - LIVER FUNCTION TEST ABNORMAL [None]
  - MYOCARDIAL INFARCTION [None]
  - OXYGEN SATURATION DECREASED [None]
  - PULMONARY OEDEMA [None]
  - RENAL FAILURE ACUTE [None]
  - TROPONIN INCREASED [None]
